FAERS Safety Report 24579714 (Version 3)
Quarter: 2025Q2

REPORT INFORMATION
  Report Type: Spontaneous
  Country: US (occurrence: US)
  Receive Date: 20241105
  Receipt Date: 20250526
  Transmission Date: 20250717
  Serious: No
  Sender: MERCK SHARP & DOHME LLC
  Company Number: US-009507513-2411USA000581

PATIENT
  Age: 80 Year
  Sex: Female

DRUGS (4)
  1. KEYTRUDA [Suspect]
     Active Substance: PEMBROLIZUMAB
     Indication: Malignant melanoma
     Dates: start: 202409, end: 202410
  2. BASAGLAR [Concomitant]
     Active Substance: INSULIN GLARGINE
  3. INSULIN LISPRO [Concomitant]
     Active Substance: INSULIN LISPRO
  4. METOPROLOL [Concomitant]
     Active Substance: METOPROLOL

REACTIONS (5)
  - Dysuria [Unknown]
  - Pruritus [Unknown]
  - Somnolence [Unknown]
  - Drug ineffective [Unknown]
  - Incorrect dose administered [Unknown]

NARRATIVE: CASE EVENT DATE: 20240901
